FAERS Safety Report 20769970 (Version 1)
Quarter: 2022Q2

REPORT INFORMATION
  Report Type: Spontaneous
  Country: GB (occurrence: GB)
  Receive Date: 20220429
  Receipt Date: 20220429
  Transmission Date: 20220721
  Serious: Yes (Life-Threatening, Hospitalization)
  Sender: FDA-Public Use
  Company Number: GB-MYLANLABS-2022M1031728

PATIENT
  Sex: Female

DRUGS (2)
  1. EPINEPHRINE [Suspect]
     Active Substance: EPINEPHRINE
     Indication: Product used for unknown indication
     Dosage: UNK, THE ANAESTHETIST ATTEMPTED TO REPLACE CALCIUM WITH IV ?
     Route: 040
  2. CALCIUM GLUCONATE [Suspect]
     Active Substance: CALCIUM GLUCONATE
     Indication: Blood calcium decreased
     Dosage: UNK, THE ANAESTHETIST ATTEMPTED TO REPLACE CALCIUM WITH IV CALCIUM?
     Route: 042

REACTIONS (3)
  - Stress cardiomyopathy [Recovered/Resolved]
  - Cardiac arrest [Recovered/Resolved]
  - Wrong product administered [Unknown]
